FAERS Safety Report 24090845 (Version 6)
Quarter: 2025Q2

REPORT INFORMATION
  Report Type: Spontaneous
  Country: KR (occurrence: KR)
  Receive Date: 20240715
  Receipt Date: 20250514
  Transmission Date: 20250716
  Serious: Yes (Hospitalization, Other)
  Sender: SAMSUNG BIOEPIS
  Company Number: KR-SAMSUNG BIOEPIS-SB-2024-20545

PATIENT
  Sex: Male
  Weight: 61.2 kg

DRUGS (14)
  1. ADALIMUMAB [Suspect]
     Active Substance: ADALIMUMAB
     Indication: Rheumatoid arthritis
     Dates: start: 20230502, end: 20240430
  2. ULTRACET ER SEMI [Concomitant]
     Indication: Product used for unknown indication
     Dates: start: 20220607
  3. HYDROXYCHLOROQUINE SULFATE [Concomitant]
     Active Substance: HYDROXYCHLOROQUINE SULFATE
     Indication: Product used for unknown indication
     Dates: start: 20200504, end: 20230626
  4. CELEBREX [Concomitant]
     Active Substance: CELECOXIB
     Indication: Product used for unknown indication
     Dates: start: 20221213, end: 20230724
  5. CELEBREX [Concomitant]
     Active Substance: CELECOXIB
     Dosage: PRN;
     Dates: start: 20230725
  6. METHOTREXATE [Concomitant]
     Active Substance: METHOTREXATE
     Indication: Product used for unknown indication
     Dates: start: 20231017, end: 20240205
  7. METHOTREXATE [Concomitant]
     Active Substance: METHOTREXATE
     Dates: start: 20240206, end: 20240429
  8. METHOTREXATE [Concomitant]
     Active Substance: METHOTREXATE
     Dates: start: 20240430
  9. METHOTREXATE [Concomitant]
     Active Substance: METHOTREXATE
     Dates: start: 20220607, end: 20231016
  10. AMLODIPINE BESYLATE\OLMESARTAN MEDOXOMIL [Concomitant]
     Active Substance: AMLODIPINE BESYLATE\OLMESARTAN MEDOXOMIL
     Indication: Product used for unknown indication
     Dosage: 5/20;
     Dates: start: 20221213
  11. EZETIMIBE\PITAVASTATIN CALCIUM [Concomitant]
     Active Substance: EZETIMIBE\PITAVASTATIN CALCIUM
     Indication: Product used for unknown indication
     Dosage: 4/10;
     Dates: start: 20220929
  12. NEBIVOLOL [Concomitant]
     Active Substance: NEBIVOLOL
     Indication: Product used for unknown indication
     Dates: start: 20221213
  13. FOLIC ACID [Concomitant]
     Active Substance: FOLIC ACID
     Indication: Product used for unknown indication
     Dates: start: 20200504
  14. PROMAC [NITROFURANTOIN] [Concomitant]
     Indication: Product used for unknown indication
     Dates: start: 20200504

REACTIONS (6)
  - Malignant neoplasm of eye [Unknown]
  - Erectile dysfunction [Unknown]
  - Sinusitis [Not Recovered/Not Resolved]
  - Pruritus [Unknown]
  - Migraine [Unknown]
  - Diplopia [Unknown]
